FAERS Safety Report 6452578-4 (Version None)
Quarter: 2009Q4

REPORT INFORMATION
  Report Type: 
  Country: None (occurrence: None)
  Receive Date: 20091124
  Receipt Date: 20091116
  Transmission Date: 20100525
  Serious: Yes (Other)
  Sender: FDA-Public Use
  Company Number: US-ASTRAZENECA-2006UW09012

PATIENT
  Age: 373 Month
  Sex: Male
  Weight: 71.7 kg

DRUGS (10)
  1. SEROQUEL [Suspect]
     Indication: SCHIZOPHRENIA
     Dosage: 25 MG TO 400 MG
     Route: 048
     Dates: start: 20020101
  2. SEROQUEL [Suspect]
     Dosage: 25 MG TO 300 MG
     Route: 048
     Dates: start: 20020130
  3. ZYPREXA [Suspect]
     Indication: SCHIZOPHRENIA
     Dosage: 2.5 MG TO 5 MG
     Dates: start: 20000901, end: 20020101
  4. RISPERDAL [Concomitant]
     Indication: SCHIZOPHRENIA
     Dates: start: 19991201, end: 20000201
  5. CLOZARIL [Concomitant]
  6. ATENOLOL [Concomitant]
     Route: 048
  7. PRAVACHOL [Concomitant]
  8. DIAZEPAM [Concomitant]
  9. ACETAMINOPHEN AND HYDROCODONE BITARTRATE [Concomitant]
     Dosage: 7.5-750 ONE TABLET TWICE A DAY AS NEEDED
  10. SINGULAIR [Concomitant]

REACTIONS (3)
  - PANCREATITIS [None]
  - RENAL FAILURE CHRONIC [None]
  - TYPE 2 DIABETES MELLITUS [None]
